FAERS Safety Report 7270738-X (Version None)
Quarter: 2011Q1

REPORT INFORMATION
  Report Type: 
  Country: None (occurrence: None)
  Receive Date: 20110202
  Receipt Date: 20110124
  Transmission Date: 20110831
  Serious: Yes (Other)
  Sender: FDA-Public Use
  Company Number: JP-JNJFOC-20100406019

PATIENT
  Age: 56 Year
  Sex: Male
  Weight: 65 kg

DRUGS (22)
  1. REMICADE [Suspect]
     Indication: CROHN'S DISEASE
     Route: 042
  2. PREDNISOLONE [Concomitant]
     Route: 048
  3. REMICADE [Suspect]
     Route: 042
  4. LOPEMIN [Concomitant]
     Indication: DIARRHOEA
     Route: 048
  5. PROMAC (POLAPREZINC) [Concomitant]
     Indication: MINERAL SUPPLEMENTATION
     Route: 048
  6. REMICADE [Suspect]
     Route: 042
  7. METHYCOBAL [Concomitant]
     Indication: VITAMIN SUPPLEMENTATION
     Route: 048
  8. PREDNISOLONE [Concomitant]
     Indication: CROHN'S DISEASE
     Route: 048
  9. PREDNISOLONE [Concomitant]
     Route: 048
  10. AZELASTINE HCL [Concomitant]
     Indication: PROPHYLAXIS
     Dosage: GIVEN WITH INFLIXIMAB DOSES
     Route: 048
  11. DAI-KENCHU-TO [Concomitant]
     Indication: ABDOMINAL DISTENSION
     Route: 048
  12. REMICADE [Suspect]
     Route: 042
  13. PENTASA [Concomitant]
     Indication: CROHN'S DISEASE
     Route: 048
  14. GASCON [Concomitant]
     Indication: ABDOMINAL DISTENSION
     Route: 048
  15. REMICADE [Suspect]
     Route: 042
  16. REMICADE [Suspect]
     Route: 042
  17. REMICADE [Suspect]
     Route: 042
  18. TAGAMET [Concomitant]
     Indication: GASTRIC ULCER
     Route: 048
  19. PREDNISOLONE [Concomitant]
     Route: 048
  20. REMICADE [Suspect]
     Route: 042
  21. REMICADE [Suspect]
     Route: 042
  22. REMICADE [Suspect]
     Route: 042

REACTIONS (3)
  - ARTHRALGIA [None]
  - LUPUS-LIKE SYNDROME [None]
  - MYALGIA [None]
